FAERS Safety Report 6877694-4 (Version None)
Quarter: 2010Q3

REPORT INFORMATION
  Report Type: 
  Country: None (occurrence: None)
  Receive Date: 20100727
  Receipt Date: 20100528
  Transmission Date: 20110219
  Serious: No
  Sender: FDA-Public Use
  Company Number: US-ABBOTT-10P-163-0648874-00

PATIENT
  Sex: Female
  Weight: 52.21 kg

DRUGS (7)
  1. SYNTHROID [Suspect]
     Indication: HYPOTHYROIDISM
     Dates: start: 20080101
  2. ZOCOR [Concomitant]
     Indication: BLOOD CHOLESTEROL INCREASED
  3. VIACTIV CHEW [Concomitant]
     Indication: MINERAL SUPPLEMENTATION
     Route: 048
  4. CENTRUM SILVER [Concomitant]
     Indication: VITAMIN SUPPLEMENTATION
     Route: 048
  5. CYMBALTA [Concomitant]
     Indication: PRODUCT USED FOR UNKNOWN INDICATION
  6. ADVIL LIQUI-GELS [Concomitant]
     Indication: PAIN
  7. MOTRIN [Concomitant]
     Indication: PAIN

REACTIONS (2)
  - COELIAC DISEASE [None]
  - DIARRHOEA [None]
